FAERS Safety Report 9007225 (Version 1)
Quarter: 2013Q1

REPORT INFORMATION
  Report Type: Spontaneous
  Country: BE (occurrence: BE)
  Receive Date: 20130110
  Receipt Date: 20130110
  Transmission Date: 20140127
  Serious: Yes (Other)
  Sender: FDA-Public Use
  Company Number: BE-GLAXOSMITHKLINE-B0856611A

PATIENT
  Sex: Male

DRUGS (1)
  1. NIQUITIN [Suspect]
     Indication: EX-TOBACCO USER
     Route: 065

REACTIONS (6)
  - Nasal abscess [Unknown]
  - Eye abscess [Unknown]
  - Eye swelling [Unknown]
  - Nasal oedema [Unknown]
  - Pruritus [Unknown]
  - Local swelling [Unknown]
